FAERS Safety Report 5156389-1 (Version None)
Quarter: 2006Q4

REPORT INFORMATION
  Report Type: 
  Country: None (occurrence: None)
  Receive Date: 20061114
  Receipt Date: 20061031
  Transmission Date: 20070319
  Serious: Yes (Hospitalization)
  Sender: FDA-Public Use
  Company Number: T200601255

PATIENT
  Age: 70 Year
  Sex: Male
  Weight: 95.2 kg

DRUGS (13)
  1. OXYCODONE HCL [Suspect]
     Indication: CANCER PAIN
     Dosage: 5MG, UNK; ORAL
     Route: 048
     Dates: start: 20061023, end: 20061023
  2. OXYCODONE HCL [Suspect]
     Indication: PANCREATIC CARCINOMA
     Dosage: 5MG, UNK; ORAL
     Route: 048
     Dates: start: 20061023, end: 20061023
  3. AMIODARONE HCL [Concomitant]
  4. LIPITOR [Concomitant]
  5. GLYBURIDE [Concomitant]
  6. AVANDIA (ROSIGILITAZONE MALEATE) [Concomitant]
  7. XELODA [Concomitant]
  8. PEPCID [Concomitant]
  9. LASIX [Concomitant]
  10. CLARITIN-D [Concomitant]
  11. ATIVAN [Concomitant]
  12. FIORICET [Concomitant]
  13. COUMADIN [Concomitant]

REACTIONS (1)
  - SCROTAL SWELLING [None]
